FAERS Safety Report 7463635-8 (Version None)
Quarter: 2011Q1

REPORT INFORMATION
  Report Type: 
  Country: None (occurrence: None)
  Receive Date: 20110302
  Receipt Date: 20100706
  Transmission Date: 20110831
  Serious: Yes (Other)
  Sender: FDA-Public Use
  Company Number: 163-21880-10040553

PATIENT
  Age: 62 Year
  Sex: Female

DRUGS (15)
  1. EPOGEN [Concomitant]
  2. TESSALON [Concomitant]
  3. ACYCLOVIR [Concomitant]
  4. POTASSIUM (POTASSIUM) [Concomitant]
  5. PHOSPHORUS (PHOSPHORUS) [Concomitant]
  6. NEUPOGEN [Concomitant]
  7. REVLIMID [Suspect]
     Indication: MULTIPLE MYELOMA
     Dosage: SEE IMAGE, PO
     Route: 048
     Dates: start: 20071101
  8. REVLIMID [Suspect]
     Indication: MULTIPLE MYELOMA
     Dosage: SEE IMAGE, PO
     Route: 048
     Dates: start: 20100705
  9. REVLIMID [Suspect]
     Indication: MULTIPLE MYELOMA
     Dosage: SEE IMAGE, PO
     Route: 048
     Dates: start: 20081021
  10. REVLIMID [Suspect]
     Indication: MULTIPLE MYELOMA
     Dosage: SEE IMAGE, PO
     Route: 048
     Dates: start: 20100201, end: 20100501
  11. ZEMPLAR [Concomitant]
  12. AREDIA [Concomitant]
  13. TRANSFUSIONS [Concomitant]
  14. DEXAMETHASONE [Concomitant]
  15. FOLIC ACID [Concomitant]

REACTIONS (5)
  - NEUTROPENIA [None]
  - THROMBOCYTOPENIA [None]
  - MASS [None]
  - ANAEMIA [None]
  - PANCYTOPENIA [None]
